FAERS Safety Report 14714794 (Version 2)
Quarter: 2018Q2

REPORT INFORMATION
  Report Type: Spontaneous
  Country: US (occurrence: US)
  Receive Date: 20180404
  Receipt Date: 20180409
  Transmission Date: 20180711
  Serious: Yes (Hospitalization, Disabling, Other)
  Sender: FDA-Public Use
  Company Number: US-PFIZER INC-2018134004

PATIENT
  Age: 36 Year
  Sex: Male

DRUGS (4)
  1. FENTANYL CITRATE. [Suspect]
     Active Substance: FENTANYL CITRATE
     Indication: PAIN
     Dosage: 8.9 MG, 1X/DAY
     Route: 037
     Dates: start: 2010
  2. BUPIVACAINE HCL [Suspect]
     Active Substance: BUPIVACAINE HYDROCHLORIDE
     Indication: PAIN
     Dosage: 22.2 MG, 1X/DAY
     Route: 037
     Dates: start: 2010
  3. BACLOFEN. [Concomitant]
     Active Substance: BACLOFEN
     Dosage: 10 MG, 3X/DAY
     Route: 048
  4. OXYCODONE [Concomitant]
     Active Substance: OXYCODONE
     Dosage: UNK UNK, CYCLIC, 30-60 MG AS NEEDED, EVERY 4 HOURS
     Route: 048

REACTIONS (2)
  - Catheter site mass [Recovered/Resolved]
  - Spinal cord compression [Recovering/Resolving]

NARRATIVE: CASE EVENT DATE: 201508
